APPROVED DRUG PRODUCT: SINGULAIR
Active Ingredient: MONTELUKAST SODIUM
Strength: EQ 5MG BASE
Dosage Form/Route: TABLET, CHEWABLE;ORAL
Application: N020830 | Product #001 | TE Code: AB
Applicant: ORGANON LLC A SUB OF ORGANON AND CO
Approved: Feb 20, 1998 | RLD: Yes | RS: Yes | Type: RX